FAERS Safety Report 12715551 (Version 1)
Quarter: 2016Q3

REPORT INFORMATION
  Report Type: Spontaneous
  Country: DE (occurrence: DE)
  Receive Date: 20160906
  Receipt Date: 20160906
  Transmission Date: 20161109
  Serious: Yes (Hospitalization)
  Sender: FDA-Public Use
  Company Number: DE-ACCORD-043572

PATIENT
  Age: 51 Year
  Sex: Female
  Weight: 160 kg

DRUGS (2)
  1. CARBOMEDAC [Suspect]
     Active Substance: CARBOPLATIN
     Indication: PRODUCT USED FOR UNKNOWN INDICATION
     Dosage: STRENGTH: 600 MG
     Route: 042
     Dates: start: 20160811, end: 20160811
  2. DOCETAXEL ACCORD [Suspect]
     Active Substance: DOCETAXEL
     Indication: PRODUCT USED FOR UNKNOWN INDICATION
     Route: 042
     Dates: start: 20160811, end: 20160811

REACTIONS (6)
  - Dyspnoea [Recovering/Resolving]
  - Dermatitis allergic [Unknown]
  - Joint swelling [Unknown]
  - Skin burning sensation [Recovering/Resolving]
  - Dysphagia [Recovering/Resolving]
  - Erythema [Unknown]

NARRATIVE: CASE EVENT DATE: 20160811
